FAERS Safety Report 13677973 (Version 1)
Quarter: 2017Q2

REPORT INFORMATION
  Report Type: Spontaneous
  Country: US (occurrence: US)
  Receive Date: 20170621
  Receipt Date: 20170621
  Transmission Date: 20170830
  Serious: No
  Sender: FDA-Public Use
  Company Number: None

PATIENT
  Age: 62 Year
  Sex: Male

DRUGS (1)
  1. IMATINIB MESYLATE 400 MG SUN PHARMA [Suspect]
     Active Substance: IMATINIB MESYLATE
     Indication: NEOPLASM MALIGNANT
     Route: 048
     Dates: start: 20140620

REACTIONS (2)
  - Increased tendency to bruise [None]
  - Erythema [None]

NARRATIVE: CASE EVENT DATE: 20170620
